FAERS Safety Report 24066739 (Version 1)
Quarter: 2024Q3

REPORT INFORMATION
  Report Type: Spontaneous
  Country: US (occurrence: None)
  Receive Date: 20240709
  Receipt Date: 20240709
  Transmission Date: 20241016
  Serious: Yes (Hospitalization)
  Sender: Public
  Company Number: None

PATIENT
  Sex: Female

DRUGS (4)
  1. WINREVAIR [Suspect]
     Active Substance: SOTATERCEPT-CSRK
     Indication: Pulmonary arterial hypertension
     Dosage: FREQUENCY : EVERY THREE WEEKS;?
     Route: 058
     Dates: start: 202405
  2. DEVICE [Concomitant]
     Active Substance: DEVICE
  3. OPSUMIT [Concomitant]
     Active Substance: MACITENTAN
  4. VELETRI SDV [Concomitant]

REACTIONS (1)
  - Infection [None]
